FAERS Safety Report 22041832 (Version 1)
Quarter: 2023Q1

REPORT INFORMATION
  Report Type: Report from Study
  Country: UZ (occurrence: UZ)
  Receive Date: 20230227
  Receipt Date: 20230227
  Transmission Date: 20230418
  Serious: Yes (Other)
  Sender: FDA-Public Use
  Company Number: UZ-MYLANLABS-2023M1020643

PATIENT
  Age: 61 Year
  Sex: Female
  Weight: 61 kg

DRUGS (26)
  1. PRETOMANID [Suspect]
     Active Substance: PRETOMANID
     Indication: Pulmonary tuberculosis
     Dosage: UNK, DOSAGE 200
     Route: 048
     Dates: start: 20230119, end: 20230217
  2. PRETOMANID [Suspect]
     Active Substance: PRETOMANID
     Indication: Tuberculosis
  3. MOXIFLOXACIN [Suspect]
     Active Substance: MOXIFLOXACIN
     Indication: Pulmonary tuberculosis
     Dosage: UNK, DOSAGE 400
     Route: 048
     Dates: start: 20221229, end: 20230217
  4. MOXIFLOXACIN [Suspect]
     Active Substance: MOXIFLOXACIN
     Indication: Tuberculosis
  5. CLOFAZIMINE [Suspect]
     Active Substance: CLOFAZIMINE
     Indication: Pulmonary tuberculosis
     Dosage: UNK, DOSAGE: 100
     Route: 048
     Dates: start: 20221229, end: 20230118
  6. CLOFAZIMINE [Suspect]
     Active Substance: CLOFAZIMINE
     Indication: Tuberculosis
  7. LINEZOLID [Suspect]
     Active Substance: LINEZOLID
     Indication: Pulmonary tuberculosis
     Dosage: UNK, DOSAGE: 600
     Route: 048
     Dates: start: 20221229, end: 20230217
  8. LINEZOLID [Suspect]
     Active Substance: LINEZOLID
     Indication: Tuberculosis
  9. BEDAQUILINE [Suspect]
     Active Substance: BEDAQUILINE
     Indication: Pulmonary tuberculosis
     Dosage: UNK, DOSAGE: 400
     Route: 048
     Dates: start: 20221230, end: 20230112
  10. BEDAQUILINE [Suspect]
     Active Substance: BEDAQUILINE
     Indication: Tuberculosis
     Dosage: UNK, DOSAGE: 200
     Route: 048
     Dates: start: 20230113, end: 20230217
  11. BISOPROLOL [Concomitant]
     Active Substance: BISOPROLOL
     Dosage: 1 DOSAGE FORM, QD
     Route: 065
     Dates: start: 20230117, end: 20230216
  12. Thrombo [Concomitant]
     Dosage: 1 DOSAGE FORM, QD,
     Route: 065
     Dates: start: 20230117
  13. TORSID [Concomitant]
     Dosage: 1 DOSAGE FORM, QD, FOR 5 DAYS
     Route: 065
  14. MAGNESIUM ASPARTATE\POTASSIUM ASPARTATE [Concomitant]
     Active Substance: MAGNESIUM ASPARTATE\POTASSIUM ASPARTATE
     Dosage: 1 DOSAGE FORM, BID, FOR 10 DAYS
     Route: 065
  15. OMEPRAZOLE [Concomitant]
     Active Substance: OMEPRAZOLE
     Dosage: UNK,  (TWICE A DAY FOR 10 DAYS)
     Route: 065
  16. EUPHYLLINUM [Concomitant]
     Dosage: 2.4-5.0 PERCENT INTRAVENOUSLY IF MEDICALLY REQUIRED
     Route: 042
  17. DEXAMETHASONE [Concomitant]
     Active Substance: DEXAMETHASONE
     Dosage: UNK, 40MG IF MEDICALLY REQUIRED
     Route: 065
  18. METOCLOPRAMIDE [Concomitant]
     Active Substance: METOCLOPRAMIDE
     Dosage: 2.0ML INTRAMUSCULARLY FOR 6 DAYS
     Route: 030
  19. PIRACETAM [Concomitant]
     Active Substance: PIRACETAM
     Dosage: 20 PERCENT 10ML INTRAVENOUSLY FOR 5 DAYS
     Route: 042
  20. HEPARIN [Concomitant]
     Active Substance: HEPARIN SODIUM
     Dosage: 5000ED SUBCUTANEOUSLY FOR 4 DAYS
     Route: 058
  21. CHLOROPYRAMINE HYDROCHLORIDE [Concomitant]
     Active Substance: CHLOROPYRAMINE HYDROCHLORIDE
     Dosage: 1.0 ML FOR 2 DAYS
     Route: 065
  22. MAGNE B6 [Concomitant]
     Active Substance: MAGNESIUM\PYRIDOXINE
     Dosage: 1 DOSAGE FORM, BID, FOR 10 DAYS
     Route: 065
  23. THIOTRIASOLINE [Concomitant]
     Dosage: UNK, (2.4 PERCENT 4ML)
     Route: 065
  24. CARVEDILOL [Concomitant]
     Active Substance: CARVEDILOL
     Dosage: 6.25(2/1 TABLETS PER DAY)
     Route: 065
     Dates: start: 20230209
  25. NITROXOLINE [Concomitant]
     Active Substance: NITROXOLINE
     Dosage: 1 DOSAGE FORM, QD, FOR 10 DAYS
     Route: 065
  26. ENALAPRIL [Concomitant]
     Active Substance: ENALAPRIL
     Dosage: UNK
     Route: 065
     Dates: start: 20230120, end: 20230209

REACTIONS (7)
  - Electrocardiogram QT prolonged [Unknown]
  - Decreased appetite [Unknown]
  - Nausea [Unknown]
  - Vomiting [Unknown]
  - Chronic obstructive pulmonary disease [Unknown]
  - Abdominal pain [Unknown]
  - Blood pressure decreased [Unknown]

NARRATIVE: CASE EVENT DATE: 20230216
